FAERS Safety Report 16193982 (Version 2)
Quarter: 2019Q2

REPORT INFORMATION
  Report Type: Spontaneous
  Country: TR (occurrence: TR)
  Receive Date: 20190413
  Receipt Date: 20190424
  Transmission Date: 20190711
  Serious: Yes (Other)
  Sender: FDA-Public Use
  Company Number: PHHY2019TR081104

PATIENT
  Age: 69 Year
  Sex: Male

DRUGS (1)
  1. ONEPTUS [Suspect]
     Active Substance: SACUBITRIL\VALSARTAN
     Indication: CARDIAC FAILURE
     Dosage: 100 MG, UNK
     Route: 048
     Dates: end: 20190405

REACTIONS (10)
  - Nasal pruritus [Not Recovered/Not Resolved]
  - Alopecia [Not Recovered/Not Resolved]
  - Hypotension [Not Recovered/Not Resolved]
  - Syncope [Not Recovered/Not Resolved]
  - Renal impairment [Not Recovered/Not Resolved]
  - Neck pain [Not Recovered/Not Resolved]
  - Musculoskeletal pain [Not Recovered/Not Resolved]
  - Drug ineffective [Not Recovered/Not Resolved]
  - Renal pain [Not Recovered/Not Resolved]
  - Pruritus generalised [Recovered/Resolved]
